FAERS Safety Report 10478088 (Version 1)
Quarter: 2014Q3

REPORT INFORMATION
  Report Type: Report from Study
  Country: US (occurrence: US)
  Receive Date: 20140926
  Receipt Date: 20140926
  Transmission Date: 20150326
  Serious: Yes (Death)
  Sender: FDA-Public Use
  Company Number: US-MYLANLABS-2014M1005911

PATIENT

DRUGS (20)
  1. MARIJUANA [Concomitant]
     Active Substance: CANNABIS SATIVA SUBSP. INDICA TOP
     Dosage: UNK
     Dates: start: 2008, end: 2013
  2. POTASSIUM CHLORIDE. [Concomitant]
     Active Substance: POTASSIUM CHLORIDE
     Dosage: UNK
     Dates: start: 2008, end: 2013
  3. DIAZEPAM. [Suspect]
     Active Substance: DIAZEPAM
     Dosage: UNK
     Route: 048
     Dates: start: 2000, end: 2013
  4. DOXEPIN [Suspect]
     Active Substance: DOXEPIN
     Dosage: UNK
     Route: 048
     Dates: start: 2010, end: 2013
  5. HYDROCODONE [Suspect]
     Active Substance: HYDROCODONE
     Dosage: UNK
     Route: 048
     Dates: start: 2000, end: 2013
  6. LEVOTHYROXINE [Concomitant]
     Active Substance: LEVOTHYROXINE
     Dosage: UNK
     Dates: start: 2010, end: 2013
  7. TEMAZEPAM. [Suspect]
     Active Substance: TEMAZEPAM
     Route: 048
  8. NALDEMEDINE [Suspect]
     Active Substance: NALDEMEDINE
     Indication: CONSTIPATION
  9. VITAMIN B12 [Concomitant]
     Active Substance: CYANOCOBALAMIN
     Dosage: UNK
     Dates: start: 201307, end: 2013
  10. ACETAMINOPHEN. [Suspect]
     Active Substance: ACETAMINOPHEN
     Route: 048
  11. XOPENEX HFA [Concomitant]
     Active Substance: LEVALBUTEROL TARTRATE
     Dosage: UNK
     Dates: start: 2008, end: 2013
  12. BECLOMETHASONE DIPROPIONATE        /00212602/ [Concomitant]
     Dosage: UNK
     Dates: start: 2008, end: 2013
  13. ETHANOL [Suspect]
     Active Substance: ALCOHOL
     Dosage: UNK
     Route: 048
     Dates: end: 2013
  14. GABAPENTIN. [Concomitant]
     Active Substance: GABAPENTIN
     Dosage: UNK
     Dates: start: 2000, end: 2013
  15. NORTRIPTYLINE [Suspect]
     Active Substance: NORTRIPTYLINE
     Dosage: UNK
     Route: 048
     Dates: start: 2011, end: 2013
  16. FUROSEMIDE. [Concomitant]
     Active Substance: FUROSEMIDE
     Dosage: UNK
     Dates: start: 2008, end: 2013
  17. CITALOPRAM [Concomitant]
     Active Substance: CITALOPRAM HYDROBROMIDE
     Dosage: UNK
     Dates: start: 2010, end: 2013
  18. MULTIVITAMIN                       /00097801/ [Concomitant]
     Active Substance: VITAMINS
     Dosage: UNK
     Dates: start: 201307, end: 2013
  19. GINKGO BILOBA [Concomitant]
     Active Substance: GINKGO
     Dosage: UNK
     Dates: start: 201307, end: 2013
  20. METHAMPHETAMINE HYDROCHLORIDE TABLETS, USP [Suspect]
     Active Substance: METHAMPHETAMINE HYDROCHLORIDE
     Route: 048

REACTIONS (7)
  - Exposure via ingestion [None]
  - Obesity [None]
  - Emphysema [None]
  - Death [Fatal]
  - Hypertensive heart disease [None]
  - Tobacco user [None]
  - Arteriosclerosis coronary artery [None]

NARRATIVE: CASE EVENT DATE: 20131125
